FAERS Safety Report 4355796-4 (Version None)
Quarter: 2004Q2

REPORT INFORMATION
  Report Type: 
  Country: None (occurrence: None)
  Receive Date: 20040510
  Receipt Date: 20040510
  Transmission Date: 20050107
  Serious: No
  Sender: FDA-Public Use
  Company Number: None

PATIENT
  Age: 5 Year
  Sex: Female
  Weight: 15 kg

DRUGS (8)
  1. AMLODIPINE [Suspect]
     Indication: HYPERTENSION
     Dosage: 5 MG PO QD
     Route: 048
     Dates: start: 20040208, end: 20040422
  2. AMLODIPINE [Suspect]
     Indication: POST PROCEDURAL COMPLICATION
     Dosage: 5 MG PO QD
     Route: 048
     Dates: start: 20040208, end: 20040422
  3. METHOTREXATE [Concomitant]
  4. TOPIRMATE [Concomitant]
  5. DOCUSATE [Concomitant]
  6. NYSTATIN MOUTHWASH [Concomitant]
  7. PERTAMIDINE NEB [Concomitant]
  8. PERIDEX MOUTHWASH [Concomitant]

REACTIONS (1)
  - DYSKINESIA [None]
